FAERS Safety Report 6728184-0 (Version None)
Quarter: 2010Q2

REPORT INFORMATION
  Report Type: 
  Country: None (occurrence: None)
  Receive Date: 20100517
  Receipt Date: 20100506
  Transmission Date: 20101027
  Serious: Yes (Other)
  Sender: FDA-Public Use
  Company Number: B0649042A

PATIENT
  Age: 36 Year
  Sex: Female

DRUGS (1)
  1. CEFUROXIME [Suspect]
     Indication: INFECTION PROPHYLAXIS
     Dosage: 1MG SINGLE DOSE
     Route: 031

REACTIONS (4)
  - BLISTER [None]
  - CONJUNCTIVAL HYPERAEMIA [None]
  - CORNEAL DISORDER [None]
  - CORNEAL OEDEMA [None]
